FAERS Safety Report 4499679-8 (Version None)
Quarter: 2004Q4

REPORT INFORMATION
  Report Type: 
  Country: None (occurrence: None)
  Receive Date: 20040928
  Receipt Date: 20040825
  Transmission Date: 20050328
  Serious: No
  Sender: FDA-Public Use
  Company Number: 04P-163-0271511-00

PATIENT
  Age: 74 Year
  Sex: Female
  Weight: 58.9676 kg

DRUGS (8)
  1. HUMIRA [Suspect]
     Indication: RHEUMATOID ARTHRITIS
     Dosage: 40 MG, SUBCUTANEOUS
     Route: 058
     Dates: start: 20040619
  2. LEVOTHYROXINE SODIUM [Concomitant]
  3. FLUOXETINE HYDROCHLORIDE [Concomitant]
  4. CONJUGATED ESTROGEN [Concomitant]
  5. LOMOTIL [Concomitant]
  6. WARFARIN SODIUM [Concomitant]
  7. MAXIDEX [Concomitant]
  8. LEFLUNOMIDE [Concomitant]

REACTIONS (3)
  - ARTHRITIS [None]
  - CONDITION AGGRAVATED [None]
  - RASH [None]
